FAERS Safety Report 22719567 (Version 2)
Quarter: 2024Q3

REPORT INFORMATION
  Report Type: Spontaneous
  Country: US (occurrence: US)
  Receive Date: 20230718
  Receipt Date: 20240728
  Transmission Date: 20241017
  Serious: No
  Sender: SUNOVION
  Company Number: US-UROVANT SCIENCES GMBH-202111-URV-000680

PATIENT
  Age: 84 Year
  Sex: Male

DRUGS (1)
  1. GEMTESA [Suspect]
     Active Substance: VIBEGRON
     Indication: Hypertonic bladder
     Dosage: 75 MG, QD
     Route: 048
     Dates: start: 202302, end: 202304

REACTIONS (3)
  - Rhinorrhoea [Unknown]
  - Nasal congestion [Unknown]
  - Product availability issue [Unknown]

NARRATIVE: CASE EVENT DATE: 20230401
